FAERS Safety Report 12511547 (Version 1)
Quarter: 2016Q2

REPORT INFORMATION
  Report Type: Spontaneous
  Country: FR (occurrence: FR)
  Receive Date: 20160629
  Receipt Date: 20160629
  Transmission Date: 20160815
  Serious: Yes (Hospitalization)
  Sender: FDA-Public Use
  Company Number: FR-ROCHE-1784072

PATIENT
  Sex: Female

DRUGS (2)
  1. CELLCEPT [Suspect]
     Active Substance: MYCOPHENOLATE MOFETIL\MYCOPHENOLATE MOFETIL HYDROCHLORIDE
     Indication: NEPHROTIC SYNDROME
     Route: 065
  2. LEVAMISOLE [Suspect]
     Active Substance: LEVAMISOLE
     Indication: NEPHROTIC SYNDROME
     Route: 065

REACTIONS (8)
  - Pyrexia [Unknown]
  - Varicella [Unknown]
  - Diarrhoea [Unknown]
  - Influenza [Unknown]
  - Myalgia [Unknown]
  - Depression [Unknown]
  - Off label use [Unknown]
  - Abdominal pain [Unknown]
